FAERS Safety Report 4384390-4 (Version None)
Quarter: 2004Q2

REPORT INFORMATION
  Report Type: 
  Country: None (occurrence: None)
  Receive Date: 20040624
  Receipt Date: 20040527
  Transmission Date: 20050107
  Serious: Yes (Life-Threatening, Hospitalization, Disabling)
  Sender: FDA-Public Use
  Company Number: US-BRISTOL-MYERS SQUIBB COMPANY-12598413

PATIENT
  Age: 34 Year
  Sex: Female

DRUGS (12)
  1. VIDEX EC [Suspect]
     Indication: HIV INFECTION
     Route: 048
     Dates: start: 20020901, end: 20031227
  2. SUSTIVA [Suspect]
     Indication: HIV INFECTION
     Route: 048
     Dates: start: 20020901, end: 20031227
  3. VIREAD [Suspect]
     Indication: HIV INFECTION
     Route: 048
     Dates: start: 20020901, end: 20031227
  4. NASONEX [Concomitant]
     Dates: start: 20020901
  5. AMBIEN [Concomitant]
     Dates: start: 20030101
  6. CLONAZEPAM [Concomitant]
     Dates: start: 20030101
  7. AMOXICILLIN [Concomitant]
     Dates: start: 20030601
  8. RESTORIL [Concomitant]
     Dates: start: 20030801
  9. TRAZODONE HCL [Concomitant]
     Dates: start: 20031001
  10. HYDROXYZINE [Concomitant]
     Dates: start: 20020901
  11. PAXIL [Concomitant]
     Dates: start: 20020901
  12. IBUPROFEN [Concomitant]
     Dates: start: 20030101

REACTIONS (7)
  - APPENDICITIS [None]
  - CD4 LYMPHOCYTES DECREASED [None]
  - CHOLECYSTITIS [None]
  - LACTIC ACIDOSIS [None]
  - PAIN IN EXTREMITY [None]
  - TRANSAMINASES INCREASED [None]
  - WEIGHT DECREASED [None]
